FAERS Safety Report 5749617-2 (Version None)
Quarter: 2008Q2

REPORT INFORMATION
  Report Type: 
  Country: None (occurrence: None)
  Receive Date: 20080521
  Receipt Date: 20080521
  Transmission Date: 20081010
  Serious: No
  Sender: FDA-Public Use
  Company Number: None

PATIENT
  Age: 90 Year
  Sex: Male
  Weight: 73 kg

DRUGS (2)
  1. CLINDAMYCIN [Suspect]
     Indication: CELLULITIS
     Dosage: 150 MG TID PO  ; 400 MG EVERY DAY PO
     Route: 048
     Dates: start: 20080411, end: 20080416
  2. CLINDAMYCIN [Suspect]
     Indication: CELLULITIS
     Dosage: 150 MG TID PO  ; 400 MG EVERY DAY PO
     Route: 048
     Dates: start: 20080411, end: 20080516

REACTIONS (7)
  - ANAEMIA [None]
  - BLOOD CREATININE INCREASED [None]
  - BLOOD UREA INCREASED [None]
  - CLOSTRIDIUM DIFFICILE COLITIS [None]
  - DEHYDRATION [None]
  - GASTROINTESTINAL HAEMORRHAGE [None]
  - WHITE BLOOD CELL COUNT DECREASED [None]
